FAERS Safety Report 17886452 (Version 1)
Quarter: 2020Q2

REPORT INFORMATION
  Report Type: Spontaneous
  Country: US (occurrence: US)
  Receive Date: 20200611
  Receipt Date: 20200611
  Transmission Date: 20200714
  Serious: Yes (Other)
  Sender: FDA-Public Use
  Company Number: US-ASTRAZENECA-2020SE72709

PATIENT
  Sex: Female
  Weight: 104.3 kg

DRUGS (2)
  1. SYMBICORT [Suspect]
     Active Substance: BUDESONIDE\FORMOTEROL FUMARATE DIHYDRATE
     Indication: CHRONIC OBSTRUCTIVE PULMONARY DISEASE
     Dosage: 80/4.5 MCG, 2 PUFFS, BID
     Route: 055
     Dates: start: 202003
  2. ALBUTEROL. [Concomitant]
     Active Substance: ALBUTEROL

REACTIONS (9)
  - Suspected COVID-19 [Unknown]
  - Dyspnoea [Unknown]
  - Intentional device misuse [Unknown]
  - Dizziness [Unknown]
  - Condition aggravated [Not Recovered/Not Resolved]
  - Device issue [Unknown]
  - Incorrect dose administered by device [Unknown]
  - Malaise [Unknown]
  - Vertigo [Recovering/Resolving]

NARRATIVE: CASE EVENT DATE: 202003
